FAERS Safety Report 10283677 (Version 3)
Quarter: 2014Q3

REPORT INFORMATION
  Report Type: Report from Study
  Country: CA (occurrence: CA)
  Receive Date: 20140708
  Receipt Date: 20140902
  Transmission Date: 20150326
  Serious: Yes (Death)
  Sender: FDA-Public Use
  Company Number: CA-ABBVIE-14P-028-1256837-00

PATIENT
  Age: 46 Year
  Sex: Male

DRUGS (1)
  1. HUMIRA [Suspect]
     Active Substance: ADALIMUMAB
     Indication: PRODUCT USED FOR UNKNOWN INDICATION
     Route: 058
     Dates: start: 20110426

REACTIONS (14)
  - Hepatic vascular thrombosis [Fatal]
  - Fat necrosis [Fatal]
  - Cardiac arrest [Fatal]
  - Anastomotic haemorrhage [Fatal]
  - White blood cell count increased [Fatal]
  - Escherichia infection [Fatal]
  - Depressed level of consciousness [Fatal]
  - Proctocolectomy [Fatal]
  - Abdominal pain [Fatal]
  - Abdominal abscess [Fatal]
  - Pulmonary embolism [Fatal]
  - Hepatic steatosis [Fatal]
  - Abscess intestinal [Fatal]
  - Fibrosis [Fatal]

NARRATIVE: CASE EVENT DATE: 20120307
